FAERS Safety Report 25868534 (Version 1)
Quarter: 2025Q4

REPORT INFORMATION
  Report Type: Spontaneous
  Country: US (occurrence: US)
  Receive Date: 20251001
  Receipt Date: 20251001
  Transmission Date: 20260117
  Serious: Yes (Hospitalization)
  Sender: ACCORD
  Company Number: US-Accord-505998

PATIENT
  Age: 71 Year
  Sex: Female

DRUGS (1)
  1. MITOMYCIN [Suspect]
     Active Substance: MITOMYCIN
     Indication: Procoagulant therapy

REACTIONS (3)
  - Ischaemia [Recovered/Resolved]
  - Conjunctival defect [Recovered/Resolved]
  - Off label use [Unknown]
